FAERS Safety Report 9475660 (Version 1)
Quarter: 2013Q3

REPORT INFORMATION
  Report Type: Spontaneous
  Country: US (occurrence: None)
  Receive Date: 20130812
  Receipt Date: 20130812
  Transmission Date: 20140515
  Serious: Yes (Hospitalization)
  Sender: FDA-Public Use
  Company Number: KAMADA LTD MFR # 40346

PATIENT
  Age: 52 Year
  Sex: Female
  Weight: 72.6 kg

DRUGS (2)
  1. GLASSIA [Suspect]
     Indication: ALPHA-1 ANTI-TRYPSIN DEFICIENCY
     Dosage: 5000MG +/-10% WEEKLY IV
     Dates: start: 2012
  2. LISINOPRIL [Concomitant]

REACTIONS (2)
  - Malaise [None]
  - Chronic obstructive pulmonary disease [None]
